FAERS Safety Report 4708284-7 (Version None)
Quarter: 2005Q3

REPORT INFORMATION
  Report Type: 
  Country: None (occurrence: None)
  Receive Date: 20050707
  Receipt Date: 20030605
  Transmission Date: 20060218
  Serious: Yes (Other)
  Sender: FDA-Public Use
  Company Number: US-MERCK-0306USA00921

PATIENT
  Age: 81 Year
  Sex: Male
  Weight: 116 kg

DRUGS (5)
  1. VIOXX [Suspect]
     Indication: BACK PAIN
     Route: 048
     Dates: start: 20010417, end: 20010903
  2. AVALIDE [Concomitant]
     Route: 065
     Dates: end: 20010611
  3. CARDURA [Concomitant]
     Route: 065
  4. PLAVIX [Concomitant]
     Indication: THROMBOSIS
     Route: 065
     Dates: end: 20010903
  5. ECOTRIN [Concomitant]
     Route: 065
     Dates: end: 20010903

REACTIONS (31)
  - ADVERSE EVENT [None]
  - ANAEMIA [None]
  - ANGINA PECTORIS [None]
  - AORTIC VALVE SCLEROSIS [None]
  - ATRIAL FIBRILLATION [None]
  - BLOOD PRESSURE INCREASED [None]
  - CARDIAC MURMUR [None]
  - CEREBROVASCULAR ACCIDENT [None]
  - COLONIC POLYP [None]
  - CONVULSION [None]
  - COUGH [None]
  - DEPRESSION [None]
  - DIARRHOEA [None]
  - DILATATION ATRIAL [None]
  - DIVERTICULUM INTESTINAL [None]
  - DIZZINESS [None]
  - FATIGUE [None]
  - FREQUENT BOWEL MOVEMENTS [None]
  - GASTRITIS EROSIVE [None]
  - HAEMORRHOIDS [None]
  - INSOMNIA [None]
  - MALAISE [None]
  - MITRAL VALVE INCOMPETENCE [None]
  - MITRAL VALVE SCLEROSIS [None]
  - OESOPHAGEAL DISORDER [None]
  - PYREXIA [None]
  - SICK SINUS SYNDROME [None]
  - TRICUSPID VALVE INCOMPETENCE [None]
  - VENTRICULAR HYPERTROPHY [None]
  - WEIGHT DECREASED [None]
  - WHEEZING [None]
